FAERS Safety Report 17431084 (Version 1)
Quarter: 2020Q1

REPORT INFORMATION
  Report Type: Spontaneous
  Country: US (occurrence: US)
  Receive Date: 20200217
  Receipt Date: 20200217
  Transmission Date: 20200409
  Serious: No
  Sender: FDA-Public Use
  Company Number: None

PATIENT
  Age: 56 Year
  Sex: Female

DRUGS (2)
  1. TYMLOS [Concomitant]
     Active Substance: ABALOPARATIDE
  2. TYMLOS [Suspect]
     Active Substance: ABALOPARATIDE

REACTIONS (6)
  - Tachycardia [None]
  - Dyspnoea [None]
  - Nausea [None]
  - Pain in extremity [None]
  - Dizziness [None]
  - Headache [None]

NARRATIVE: CASE EVENT DATE: 20200217
